FAERS Safety Report 24711383 (Version 1)
Quarter: 2024Q4

REPORT INFORMATION
  Report Type: Spontaneous
  Country: FR (occurrence: FR)
  Receive Date: 20241209
  Receipt Date: 20241209
  Transmission Date: 20250115
  Serious: Yes (Death, Other)
  Sender: MERCK
  Company Number: FR-009507513-2412FRA002028

PATIENT
  Age: 74 Year
  Sex: Male

DRUGS (2)
  1. KEYTRUDA [Suspect]
     Active Substance: PEMBROLIZUMAB
     Indication: Colorectal cancer
  2. KEYTRUDA [Suspect]
     Active Substance: PEMBROLIZUMAB
     Indication: Microsatellite instability cancer

REACTIONS (6)
  - Death [Fatal]
  - Lung disorder [Unknown]
  - Mucosal inflammation [Unknown]
  - Ear swelling [Unknown]
  - Nasal oedema [Unknown]
  - Pharyngeal swelling [Unknown]
